FAERS Safety Report 23152120 (Version 2)
Quarter: 2023Q4

REPORT INFORMATION
  Report Type: Other
  Country: IN (occurrence: None)
  Receive Date: 20231107
  Receipt Date: 20231122
  Transmission Date: 20240110
  Serious: Yes (Hospitalization)
  Sender: FDA-Public Use
  Company Number: IN-ROCHE-3450521

PATIENT
  Age: 64 Year
  Sex: Female

DRUGS (1)
  1. TRASTUZUMAB [Suspect]
     Active Substance: TRASTUZUMAB
     Indication: Breast cancer
     Route: 041
     Dates: start: 20220330

REACTIONS (2)
  - Breast operation [Recovered/Resolved]
  - Ovarian operation [Recovered/Resolved]

NARRATIVE: CASE EVENT DATE: 20220602
